FAERS Safety Report 14022043 (Version 6)
Quarter: 2018Q4

REPORT INFORMATION
  Report Type: Spontaneous
  Country: DE (occurrence: DE)
  Receive Date: 20170928
  Receipt Date: 20181119
  Transmission Date: 20190204
  Serious: Yes (Hospitalization, Other)
  Sender: FDA-Public Use
  Company Number: DE-PURDUE PHARMA-GBR-2017-0049057

PATIENT
  Age: 71 Year
  Sex: Male
  Weight: 125 kg

DRUGS (19)
  1. ASS 1 A PHARMA [Concomitant]
     Indication: PRODUCT USED FOR UNKNOWN INDICATION
     Dosage: 100 MG, DAILY (100 MG, 1X/DAY)
     Route: 048
  2. RAMIPRIL. [Concomitant]
     Active Substance: RAMIPRIL
     Dosage: UNK (2.5)
     Route: 048
  3. MORPHIN AL [Suspect]
     Active Substance: MORPHINE SULFATE
     Dosage: 100 MG, TID (THREE TIMES PER DAY), (3X/DAY)
     Route: 048
     Dates: start: 20070101
  4. TRANSTEC [Concomitant]
     Active Substance: BUPRENORPHINE
     Indication: PRODUCT USED FOR UNKNOWN INDICATION
     Dosage: 70 MCG, Q1H, (70 MCG, UNK (70 MCG/H))
     Route: 062
  5. PANTOPRAZOLE [Concomitant]
     Active Substance: PANTOPRAZOLE
     Dosage: 40 MG, BID,  (2X/DAY)
     Route: 048
  6. SEVREDOL [Suspect]
     Active Substance: MORPHINE
     Indication: PAIN
     Dosage: UNK UNK, PRN, (UNK, AS NEEDED (MAXIMUM TWICE A DAY))
     Route: 048
  7. TORASEMID ABZ [Concomitant]
     Indication: PRODUCT USED FOR UNKNOWN INDICATION
     Dosage: 35 UNK, UNK
     Route: 048
  8. TORASEMID ABZ [Concomitant]
     Dosage: 25 MG, DAILY
     Route: 048
  9. SEVREDOL [Suspect]
     Active Substance: MORPHINE
     Dosage: UNK UNK, PRN, (UNK, AS NEEDED (MAXIMUM TWICE A DAY))
     Route: 048
  10. RAMILICH [Concomitant]
     Active Substance: RAMIPRIL
     Indication: PRODUCT USED FOR UNKNOWN INDICATION
     Dosage: 2.5 MG, DAILY, (1X/DAY)
     Route: 048
     Dates: start: 2009
  11. AMITRIPTYLINE [Suspect]
     Active Substance: AMITRIPTYLINE
     Indication: NEURALGIA
     Dosage: 50 MG, QD
     Route: 048
     Dates: start: 20161123, end: 20161126
  12. LYRICA [Suspect]
     Active Substance: PREGABALIN
     Indication: PAIN
     Dosage: 75 MG, 2X/DAY
     Route: 048
     Dates: start: 20171201
  13. LYRICA [Suspect]
     Active Substance: PREGABALIN
     Indication: NEURALGIA
     Dosage: 50 MG, BID (TWICE DAILY), (2X/DAY)
     Route: 048
     Dates: start: 20161125, end: 20171130
  14. SIMVASTATIN. [Concomitant]
     Active Substance: SIMVASTATIN
     Dosage: 40 MG, DAILY, (1X/DAY)
     Route: 048
     Dates: start: 2009
  15. PANTOPRAZOLE [Concomitant]
     Active Substance: PANTOPRAZOLE
     Dosage: 40 MG, BID,  (2X/DAY)
     Route: 048
  16. LYRICA [Suspect]
     Active Substance: PREGABALIN
     Indication: NEURALGIA
     Dosage: UNK, DAILY, (UNK, 1X/DAY)
     Route: 048
     Dates: start: 20170207
  17. LYRICA [Suspect]
     Active Substance: PREGABALIN
     Dosage: 25 MG, BID (TWICE DAILY), ( 2X/ DAY)
     Route: 048
     Dates: start: 20161123, end: 20161124
  18. MORPHIN AL [Suspect]
     Active Substance: MORPHINE SULFATE
     Indication: PAIN
     Dosage: 60 MG, BID (TWICE DAILY), (2X/DAY)
     Route: 048
     Dates: start: 20070101
  19. MOVICOL [Concomitant]
     Active Substance: POLYETHYLENE GLYCOL 3350\POTASSIUM CHLORIDE\SODIUM BICARBONATE\SODIUM CHLORIDE
     Indication: PRODUCT USED FOR UNKNOWN INDICATION
     Dosage: 2 DF, UNK
     Route: 048

REACTIONS (10)
  - Disturbance in attention [Recovered/Resolved]
  - Dizziness [Recovered/Resolved]
  - Overdose [Recovered/Resolved]
  - Weight increased [Recovered/Resolved]
  - Somnolence [Recovered/Resolved]
  - Fatigue [Recovered/Resolved]
  - Visual impairment [Recovered/Resolved]
  - Fall [Recovered/Resolved]
  - Depressed level of consciousness [Recovered/Resolved]
  - Depressed level of consciousness [Recovered/Resolved]

NARRATIVE: CASE EVENT DATE: 20161123
